FAERS Safety Report 8624140 (Version 2)
Quarter: 2012Q4

REPORT INFORMATION
  Report Type: Report from Study
  Country: FR (occurrence: FR)
  Receive Date: 20120620
  Receipt Date: 20121101
  Transmission Date: 20130627
  Serious: Yes (Hospitalization)
  Sender: FDA-Public Use
  Company Number: FR-ROCHE-1078311

PATIENT
  Age: 63 Year
  Sex: Male
  Weight: 81 kg

DRUGS (5)
  1. MYCOPHENOLATE MOFETIL [Suspect]
     Indication: TRANSPLANT REJECTION
     Route: 065
     Dates: start: 20120517, end: 20120608
  2. MYCOPHENOLATE MOFETIL [Suspect]
     Route: 065
     Dates: start: 20120615
  3. EVEROLIMUS [Suspect]
     Indication: TRANSPLANT REJECTION
     Route: 002
     Dates: start: 20120521, end: 20120608
  4. PREDNISOLONE [Suspect]
     Indication: TRANSPLANT REJECTION
     Dosage: effervescent tablet
     Route: 065
     Dates: start: 20120517
  5. CYCLOSPORINE [Suspect]
     Indication: TRANSPLANT REJECTION
     Route: 002
     Dates: start: 20120609

REACTIONS (3)
  - Small intestinal obstruction [Recovered/Resolved]
  - Thrombocytopenia [Recovered/Resolved]
  - Leukopenia [Recovered/Resolved]
